FAERS Safety Report 7516551-7 (Version None)
Quarter: 2011Q2

REPORT INFORMATION
  Report Type: 
  Country: None (occurrence: None)
  Receive Date: 20110601
  Receipt Date: 20110523
  Transmission Date: 20111010
  Serious: Yes (Hospitalization)
  Sender: FDA-Public Use
  Company Number: B0722076A

PATIENT
  Sex: Male
  Weight: 67 kg

DRUGS (5)
  1. BEVACIZUMAB [Suspect]
     Indication: NEOPLASM
     Route: 065
     Dates: start: 20101228
  2. COKENZEN [Concomitant]
     Dosage: 16MG PER DAY
     Route: 048
     Dates: start: 20110125
  3. PAZOPANIB [Suspect]
     Indication: NEOPLASM
     Dosage: 400MG PER DAY
     Route: 065
     Dates: start: 20101214
  4. ATORVASTATIN [Concomitant]
     Dosage: 10MG PER DAY
     Route: 048
     Dates: start: 20110401
  5. MANIDIPINE HYDROCHLORIDE [Concomitant]
     Dosage: 20MG PER DAY
     Route: 048
     Dates: start: 20110316

REACTIONS (1)
  - ANAL ABSCESS [None]
